FAERS Safety Report 11637352 (Version 3)
Quarter: 2016Q4

REPORT INFORMATION
  Report Type: Spontaneous
  Country: CN (occurrence: CN)
  Receive Date: 20151016
  Receipt Date: 20161025
  Transmission Date: 20170206
  Serious: Yes (Other)
  Sender: FDA-Public Use
  Company Number: CN-BRACCO-002038

PATIENT
  Age: 84 Year
  Sex: Female
  Weight: 36 kg

DRUGS (5)
  1. IOPAMIRO [Suspect]
     Active Substance: IOPAMIDOL
     Indication: COMPUTERISED TOMOGRAM
     Route: 042
     Dates: start: 20150325, end: 20150325
  2. ALMAGATE [Concomitant]
     Active Substance: ALMAGATE
     Indication: ANTACID THERAPY
     Dosage: 1 BAG
     Route: 048
     Dates: start: 201503
  3. LEVOFLOXACIN. [Concomitant]
     Active Substance: LEVOFLOXACIN
     Indication: ANTI-INFECTIVE THERAPY
     Route: 042
     Dates: start: 201503
  4. PANTOPRAZOLE [Concomitant]
     Active Substance: PANTOPRAZOLE SODIUM
     Indication: ANTACID THERAPY
     Route: 042
     Dates: start: 201503
  5. SODIUM CHLORIDE. [Concomitant]
     Active Substance: SODIUM CHLORIDE
     Route: 042
     Dates: start: 20150320

REACTIONS (3)
  - Epidermolysis bullosa [Recovering/Resolving]
  - Pyrexia [Recovered/Resolved]
  - Vomiting [Unknown]

NARRATIVE: CASE EVENT DATE: 20150325
